FAERS Safety Report 25810226 (Version 1)
Quarter: 2025Q3

REPORT INFORMATION
  Report Type: Spontaneous
  Country: US (occurrence: US)
  Receive Date: 20250917
  Receipt Date: 20250917
  Transmission Date: 20251020
  Serious: Yes (Life-Threatening, Hospitalization, Disabling, Other)
  Sender: BOSTON SCIENTIFIC
  Company Number: US-BSC-2025000093

PATIENT
  Sex: Male

DRUGS (1)
  1. VARITHENA [Suspect]
     Active Substance: POLIDOCANOL
     Indication: Product used for unknown indication
     Dates: start: 20250822, end: 20250822

REACTIONS (3)
  - Pulmonary embolism [Unknown]
  - Pain [Unknown]
  - Tenderness [Unknown]
